FAERS Safety Report 16325864 (Version 1)
Quarter: 2019Q2

REPORT INFORMATION
  Report Type: Spontaneous
  Country: US (occurrence: US)
  Receive Date: 20190516
  Receipt Date: 20190516
  Transmission Date: 20190711
  Serious: No
  Sender: FDA-Public Use
  Company Number: None

PATIENT
  Age: 39 Year
  Sex: Female
  Weight: 65.7 kg

DRUGS (2)
  1. BOTOX [Suspect]
     Active Substance: ONABOTULINUMTOXINA
     Indication: SCAR
     Dates: start: 20190515
  2. BOTOX [Suspect]
     Active Substance: ONABOTULINUMTOXINA
     Indication: SKIN WRINKLING
     Dates: start: 20190515

REACTIONS (7)
  - Vision blurred [None]
  - Palpitations [None]
  - Dyspnoea [None]
  - Nasopharyngitis [None]
  - Headache [None]
  - Asthenia [None]
  - Nasal congestion [None]

NARRATIVE: CASE EVENT DATE: 20190515
